FAERS Safety Report 5692112-X (Version None)
Quarter: 2008Q2

REPORT INFORMATION
  Report Type: 
  Country: None (occurrence: None)
  Receive Date: 20080402
  Receipt Date: 20080321
  Transmission Date: 20081010
  Serious: Yes (Other)
  Sender: FDA-Public Use
  Company Number: US-PFIZER INC-2008005677

PATIENT
  Sex: Male
  Weight: 82.6 kg

DRUGS (6)
  1. SUTENT [Suspect]
     Indication: RENAL CELL CARCINOMA
  2. SULFASALAZINE [Concomitant]
  3. TERAZOSIN HCL [Concomitant]
  4. PROTONIX [Concomitant]
  5. METOPROLOL TARTRATE [Concomitant]
  6. REMERON [Concomitant]

REACTIONS (3)
  - CARPAL TUNNEL SYNDROME [None]
  - MUSCLE SPASMS [None]
  - MUSCULOSKELETAL STIFFNESS [None]
